FAERS Safety Report 13192521 (Version 1)
Quarter: 2017Q1

REPORT INFORMATION
  Report Type: Spontaneous
  Country: US (occurrence: US)
  Receive Date: 20170207
  Receipt Date: 20170207
  Transmission Date: 20170428
  Serious: Yes (Disabling)
  Sender: FDA-Public Use
  Company Number: None

PATIENT
  Age: 82 Year
  Sex: Male
  Weight: 105.78 kg

DRUGS (7)
  1. LISINOPRIL. [Concomitant]
     Active Substance: LISINOPRIL
  2. DOXAZOSIN [Suspect]
     Active Substance: DOXAZOSIN\DOXAZOSIN MESYLATE
     Indication: PROSTATOMEGALY
     Dosage: 1 PILL
     Route: 048
     Dates: start: 201609
  3. ATORVASTATIN [Concomitant]
     Active Substance: ATORVASTATIN
  4. ASPIRIN. [Concomitant]
     Active Substance: ASPIRIN
  5. VITAMIN E [Concomitant]
     Active Substance: .ALPHA.-TOCOPHEROL
  6. ATENOLOL. [Concomitant]
     Active Substance: ATENOLOL
  7. CARDURA [Concomitant]
     Active Substance: DOXAZOSIN MESYLATE

REACTIONS (4)
  - Insomnia [None]
  - Product shape issue [None]
  - Product size issue [None]
  - Pain [None]

NARRATIVE: CASE EVENT DATE: 20170131
